FAERS Safety Report 7234064-7 (Version None)
Quarter: 2011Q1

REPORT INFORMATION
  Report Type: 
  Country: None (occurrence: None)
  Receive Date: 20110119
  Receipt Date: 20100716
  Transmission Date: 20110831
  Serious: Yes (Other)
  Sender: FDA-Public Use
  Company Number: US-PFIZER INC-2010050562

PATIENT
  Sex: Female
  Weight: 72.6 kg

DRUGS (1)
  1. AROMASIN [Suspect]
     Indication: BREAST CANCER
     Dosage: 25 MG, 1X/DAY
     Route: 048
     Dates: start: 20080101

REACTIONS (5)
  - WEIGHT INCREASED [None]
  - PAIN [None]
  - ARTHRALGIA [None]
  - HEADACHE [None]
  - ALOPECIA [None]
